FAERS Safety Report 4384287-X (Version None)
Quarter: 2004Q2

REPORT INFORMATION
  Report Type: 
  Country: None (occurrence: None)
  Receive Date: 20040621
  Receipt Date: 20040610
  Transmission Date: 20050107
  Serious: Yes (Hospitalization, Other)
  Sender: FDA-Public Use
  Company Number: 2004-04-0220

PATIENT
  Age: 56 Year
  Sex: Female
  Weight: 48 kg

DRUGS (1)
  1. INTRON A [Suspect]
     Indication: HEPATITIS C
     Dosage: 3 MIU QW-BIW INTRAMUSCULAR
     Route: 030
     Dates: start: 20020803, end: 20040330

REACTIONS (6)
  - ALANINE AMINOTRANSFERASE INCREASED [None]
  - ANTI-GAD ANTIBODY POSITIVE [None]
  - ASPARTATE AMINOTRANSFERASE INCREASED [None]
  - DIABETES MELLITUS INSULIN-DEPENDENT [None]
  - LIVER DISORDER [None]
  - PORTAL VEIN THROMBOSIS [None]
